FAERS Safety Report 15899964 (Version 1)
Quarter: 2019Q1

REPORT INFORMATION
  Report Type: Spontaneous
  Country: US (occurrence: US)
  Receive Date: 20190201
  Receipt Date: 20190201
  Transmission Date: 20190417
  Serious: No
  Sender: FDA-Public Use
  Company Number: US-FDC LIMITED-2018RIS00518

PATIENT
  Sex: Female
  Weight: 78.46 kg

DRUGS (2)
  1. AMLODIPINE [Concomitant]
     Active Substance: AMLODIPINE BESYLATE
     Dosage: 5 MG, 1X/DAY AT NIGHT
  2. LATANOPROST. [Suspect]
     Active Substance: LATANOPROST
     Indication: GLAUCOMA
     Dosage: 2 GTT, 1X/DAY (ONE DROP IN EACH EYE IN THE EVENING)
     Route: 047
     Dates: start: 201808

REACTIONS (6)
  - Incorrect dose administered [Unknown]
  - Myalgia [Unknown]
  - Overdose [Not Recovered/Not Resolved]
  - Intentional dose omission [Unknown]
  - Abnormal sensation in eye [Unknown]
  - Musculoskeletal pain [Unknown]

NARRATIVE: CASE EVENT DATE: 2018
